APPROVED DRUG PRODUCT: PREDNISOLONE
Active Ingredient: PREDNISOLONE
Strength: 15MG/5ML
Dosage Form/Route: SOLUTION;ORAL
Application: A040399 | Product #001
Applicant: PHARMACEUTICAL ASSOCIATES INC
Approved: Mar 5, 2003 | RLD: No | RS: No | Type: DISCN